FAERS Safety Report 16179288 (Version 1)
Quarter: 2019Q2

REPORT INFORMATION
  Report Type: Spontaneous
  Country: US (occurrence: US)
  Receive Date: 20190307
  Receipt Date: 20190307
  Transmission Date: 20190711
  Serious: Yes (Hospitalization)
  Sender: FDA-Public Use
  Company Number: None

PATIENT
  Sex: Female

DRUGS (24)
  1. PROMETHAZINE [Concomitant]
     Active Substance: PROMETHAZINE\PROMETHAZINE HYDROCHLORIDE
  2. FLUCONAZOLE. [Concomitant]
     Active Substance: FLUCONAZOLE
  3. LORATADINE. [Concomitant]
     Active Substance: LORATADINE
  4. SEVELAMER [Concomitant]
     Active Substance: SEVELAMER
  5. HYDRODOCO/APAP [Concomitant]
  6. LIDO/PRILOCN ORE [Concomitant]
  7. GABAPENTIN. [Concomitant]
     Active Substance: GABAPENTIN
  8. PANTOPRAZOLE [Concomitant]
     Active Substance: PANTOPRAZOLE
  9. CARVEDILOL. [Concomitant]
     Active Substance: CARVEDILOL
  10. OXYCODONE AND ACETAMINOPHEN [Concomitant]
     Active Substance: ACETAMINOPHEN\OXYCODONE HYDROCHLORIDE
  11. IBUPROFEN. [Concomitant]
     Active Substance: IBUPROFEN
  12. ESCITALOPRAM [Concomitant]
     Active Substance: ESCITALOPRAM OXALATE
  13. WARFARIN [Concomitant]
     Active Substance: WARFARIN
  14. CALC ACETATE [Concomitant]
     Active Substance: CALCIUM ACETATE
  15. BENLYSTA [Suspect]
     Active Substance: BELIMUMAB
     Indication: NEPHRITIS
     Route: 058
  16. PREDNISONE. [Concomitant]
     Active Substance: PREDNISONE
  17. CYCLOBENZAPR [Concomitant]
     Active Substance: CYCLOBENZAPRINE
  18. LORAZEPAM. [Concomitant]
     Active Substance: LORAZEPAM
  19. AMLODIPINE [Concomitant]
     Active Substance: AMLODIPINE BESYLATE
  20. HEPARIN SOD [Concomitant]
     Active Substance: HEPARIN SODIUM
  21. FENTANYL. [Concomitant]
     Active Substance: FENTANYL
  22. CALCIUM [Concomitant]
     Active Substance: CALCIUM
  23. SMZ/TMP [Concomitant]
     Active Substance: SULFAMETHOXAZOLE\TRIMETHOPRIM
  24. CLINDAMYCIN. [Concomitant]
     Active Substance: CLINDAMYCIN

REACTIONS (1)
  - Hospitalisation [None]
